FAERS Safety Report 23607901 (Version 1)
Quarter: 2024Q1

REPORT INFORMATION
  Report Type: Spontaneous
  Country: PL (occurrence: PL)
  Receive Date: 20240307
  Receipt Date: 20240307
  Transmission Date: 20240410
  Serious: Yes (Hospitalization, Other)
  Sender: FDA-Public Use
  Company Number: PL-SANDOZ-SDZ2023PL000179

PATIENT
  Age: 81 Year
  Sex: Female

DRUGS (3)
  1. VANCOMYCIN [Suspect]
     Active Substance: VANCOMYCIN
     Indication: Vascular device infection
     Dosage: 1500 MILLIGRAM, QD,(500 MG,TID)
     Route: 042
  2. VANCOMYCIN [Suspect]
     Active Substance: VANCOMYCIN
     Dosage: 1000 MILLIGRAM, QD,(500 MG, BID)
     Route: 042
  3. APIXABAN [Suspect]
     Active Substance: APIXABAN
     Indication: Atrial fibrillation
     Dosage: UNK,(REDUCED DOSE)
     Route: 065

REACTIONS (3)
  - Vascular device infection [Unknown]
  - Renal impairment [Unknown]
  - Post procedural haemorrhage [Unknown]
